FAERS Safety Report 7666633-4 (Version None)
Quarter: 2011Q3

REPORT INFORMATION
  Report Type: 
  Country: None (occurrence: None)
  Receive Date: 20110806
  Receipt Date: 20110330
  Transmission Date: 20111222
  Serious: No
  Sender: FDA-Public Use
  Company Number: US-ABBOTT-11P-163-0715570-00

PATIENT
  Age: 66 Year

DRUGS (4)
  1. NIASPAN [Suspect]
     Dates: start: 20110223, end: 20110326
  2. NIASPAN [Suspect]
     Indication: HIGH DENSITY LIPOPROTEIN INCREASED
     Dates: start: 20110125, end: 20110222
  3. NIASPAN [Suspect]
     Dates: start: 20110327
  4. CARVEDILOL [Concomitant]
     Indication: PRODUCT USED FOR UNKNOWN INDICATION

REACTIONS (2)
  - PRURITUS [None]
  - PARAESTHESIA [None]
